FAERS Safety Report 25259177 (Version 1)
Quarter: 2025Q2

REPORT INFORMATION
  Report Type: Spontaneous
  Country: US (occurrence: US)
  Receive Date: 20250501
  Receipt Date: 20250501
  Transmission Date: 20250717
  Serious: Yes (Hospitalization, Other)
  Sender: CADILA
  Company Number: US-CPL-005245

PATIENT
  Age: 30 Year
  Sex: Female

DRUGS (3)
  1. VENLAFAXINE [Suspect]
     Active Substance: VENLAFAXINE HYDROCHLORIDE
     Indication: Depression
  2. PREGABALIN [Concomitant]
     Active Substance: PREGABALIN
     Indication: Nerve compression
  3. FENTANYL [Concomitant]
     Active Substance: FENTANYL
     Indication: Nerve compression

REACTIONS (8)
  - Exertional rhabdomyolysis [Recovering/Resolving]
  - Acute kidney injury [Recovering/Resolving]
  - Encephalopathy [Recovering/Resolving]
  - Renal tubular necrosis [Recovering/Resolving]
  - Serotonin syndrome [Recovering/Resolving]
  - Neuroleptic malignant syndrome [Recovering/Resolving]
  - Liver function test increased [Recovering/Resolving]
  - Condition aggravated [Recovering/Resolving]
